FAERS Safety Report 7615741-2 (Version None)
Quarter: 2011Q3

REPORT INFORMATION
  Report Type: 
  Country: None (occurrence: None)
  Receive Date: 20110715
  Receipt Date: 20110715
  Transmission Date: 20111222
  Serious: Yes (Hospitalization)
  Sender: FDA-Public Use
  Company Number: None

PATIENT
  Sex: Male

DRUGS (1)
  1. TYKERB [Suspect]
     Dosage: 5 TABLETS QD PO
     Route: 048
     Dates: start: 20110225, end: 20110714

REACTIONS (1)
  - HOSPITALISATION [None]
